FAERS Safety Report 11831941 (Version 4)
Quarter: 2016Q2

REPORT INFORMATION
  Report Type: Spontaneous
  Country: BR (occurrence: BR)
  Receive Date: 20151214
  Receipt Date: 20160513
  Transmission Date: 20160815
  Serious: Yes (Life-Threatening, Hospitalization, Other)
  Sender: FDA-Public Use
  Company Number: BR-SA-2015SA205503

PATIENT
  Age: 44 Year
  Sex: Male
  Weight: 76 kg

DRUGS (1)
  1. ALEMTUZUMAB [Suspect]
     Active Substance: ALEMTUZUMAB
     Indication: MULTIPLE SCLEROSIS
     Dosage: DOSE: 60 (UNSOECIFIED)
     Route: 042
     Dates: start: 20151116, end: 20151120

REACTIONS (19)
  - Tonic convulsion [Recovering/Resolving]
  - Meningism [Unknown]
  - Seizure [Recovering/Resolving]
  - Hemiparesis [Unknown]
  - Depressed level of consciousness [Unknown]
  - Musculoskeletal stiffness [Unknown]
  - Subdural haematoma [Unknown]
  - Clonic convulsion [Recovering/Resolving]
  - Motor dysfunction [Unknown]
  - Asthenia [Unknown]
  - Intracranial venous sinus thrombosis [Unknown]
  - Mastocytosis [Unknown]
  - Eyelid ptosis [Unknown]
  - Confusional state [Unknown]
  - Gait disturbance [Unknown]
  - Sepsis [Unknown]
  - Protein S abnormal [Unknown]
  - Intracranial pressure increased [Unknown]
  - Central nervous system haemorrhage [Unknown]

NARRATIVE: CASE EVENT DATE: 20151119
